FAERS Safety Report 14741873 (Version 1)
Quarter: 2018Q2

REPORT INFORMATION
  Report Type: Spontaneous
  Country: VN (occurrence: VN)
  Receive Date: 20180410
  Receipt Date: 20180410
  Transmission Date: 20180711
  Serious: Yes (Death, Other)
  Sender: FDA-Public Use
  Company Number: VN-009507513-1804VNM003683

PATIENT
  Sex: Male

DRUGS (1)
  1. KEYTRUDA [Suspect]
     Active Substance: PEMBROLIZUMAB
     Indication: NON-SMALL CELL LUNG CANCER
     Dosage: 100 MG, UNK
     Dates: start: 20180305, end: 20180312

REACTIONS (1)
  - Death [Fatal]

NARRATIVE: CASE EVENT DATE: 20180312
